FAERS Safety Report 7335051-0 (Version None)
Quarter: 2011Q1

REPORT INFORMATION
  Report Type: 
  Country: None (occurrence: None)
  Receive Date: 20110224
  Receipt Date: 20100624
  Transmission Date: 20110831
  Serious: Yes (Other)
  Sender: FDA-Public Use
  Company Number: 2010BH015668

PATIENT
  Age: 1 Day
  Sex: Female
  Weight: 3.17 kg

DRUGS (1)
  1. DEXTROSE 10% IN PLASTIC CONTAINER [Suspect]
     Indication: PRODUCT USED FOR UNKNOWN INDICATION
     Dosage: EVERY DAY; IV
     Route: 042
     Dates: start: 20100516, end: 20100516

REACTIONS (2)
  - BLOOD GLUCOSE INCREASED [None]
  - INCORRECT DRUG ADMINISTRATION RATE [None]
